FAERS Safety Report 7749225-8 (Version None)
Quarter: 2011Q3

REPORT INFORMATION
  Report Type: 
  Country: None (occurrence: None)
  Receive Date: 20110908
  Receipt Date: 20110901
  Transmission Date: 20111222
  Serious: Yes (Hospitalization, Other)
  Sender: FDA-Public Use
  Company Number: 2011SP036445

PATIENT
  Age: 59 Year
  Sex: Female

DRUGS (3)
  1. REBETOL [Suspect]
     Indication: HEPATITIS C
     Dosage: 1000 MG;QD;PO
     Route: 048
     Dates: start: 20110511, end: 20110719
  2. VIRAFERONPEG [Suspect]
     Indication: HEPATITIS C
     Dosage: 1.5 MCG/KG;QW;SC
     Route: 058
     Dates: start: 20110511, end: 20110719
  3. BOCEPREVIR (SCH-503034) [Suspect]
     Indication: HEPATITIS C
     Dosage: 800 MG;TID;PO
     Route: 048
     Dates: start: 20110608, end: 20110719

REACTIONS (5)
  - LYMPHADENITIS [None]
  - ANAEMIA [None]
  - HEPATIC CIRRHOSIS [None]
  - ERYSIPELAS [None]
  - PYREXIA [None]
